FAERS Safety Report 22824949 (Version 3)
Quarter: 2024Q2

REPORT INFORMATION
  Report Type: Report from Study
  Country: BR (occurrence: BR)
  Receive Date: 20230816
  Receipt Date: 20240415
  Transmission Date: 20240716
  Serious: Yes (Other)
  Sender: FDA-Public Use
  Company Number: BR-ABBVIE-5366895

PATIENT
  Sex: Female
  Weight: 42 kg

DRUGS (2)
  1. SKYRIZI [Suspect]
     Active Substance: RISANKIZUMAB-RZAA
     Indication: Psoriasis
     Dosage: FORM STRENGTH: 75 MILLIGRAM
     Route: 058
     Dates: start: 20210819
  2. HYDROCHLOROTHIAZIDE [Concomitant]
     Active Substance: HYDROCHLOROTHIAZIDE
     Indication: Hypertension
     Dosage: START DATE TEXT: A LONG TIME AGO?FORM STRENGTH: 25 MILIGRAM
     Route: 048
     Dates: start: 1998

REACTIONS (11)
  - Eyelid ptosis [Recovered/Resolved]
  - Dry eye [Recovering/Resolving]
  - Nervousness [Recovered/Resolved]
  - Dry skin [Recovering/Resolving]
  - Glaucoma [Not Recovered/Not Resolved]
  - Eye irritation [Recovering/Resolving]
  - Cataract [Recovering/Resolving]
  - Fear of injection [Recovered/Resolved]
  - Ocular hyperaemia [Recovering/Resolving]
  - Hyperhidrosis [Recovered/Resolved]
  - Eyelid ptosis [Unknown]

NARRATIVE: CASE EVENT DATE: 20210101
